FAERS Safety Report 9537867 (Version 1)
Quarter: 2013Q3

REPORT INFORMATION
  Report Type: Spontaneous
  Country: US (occurrence: US)
  Receive Date: 20130919
  Receipt Date: 20130919
  Transmission Date: 20140515
  Serious: Yes (Other)
  Sender: FDA-Public Use
  Company Number: US-ALLERGAN-1313950US

PATIENT
  Sex: Male

DRUGS (2)
  1. TAZORAC GEL [Suspect]
     Indication: EYELID DISORDER
  2. ADVAIR [Concomitant]
     Indication: ASTHMA

REACTIONS (5)
  - Corneal scar [Unknown]
  - Chemical burns of eye [Unknown]
  - Vision blurred [Unknown]
  - Off label use [Unknown]
  - Eyelid oedema [Unknown]
